FAERS Safety Report 12378511 (Version 2)
Quarter: 2016Q3

REPORT INFORMATION
  Report Type: Spontaneous
  Country: US (occurrence: US)
  Receive Date: 20160517
  Receipt Date: 20160901
  Transmission Date: 20161109
  Serious: No
  Sender: FDA-Public Use
  Company Number: US-RELYPSA-RLY2016000202

PATIENT
  Age: 57 Year
  Sex: Female

DRUGS (28)
  1. RENVELA [Concomitant]
     Active Substance: SEVELAMER CARBONATE
  2. PRILOSEC [Concomitant]
     Active Substance: OMEPRAZOLE MAGNESIUM
  3. NITROSTAT [Concomitant]
     Active Substance: NITROGLYCERIN
  4. NEURONTIN [Concomitant]
     Active Substance: GABAPENTIN
  5. MIDODRINE HCL [Concomitant]
     Active Substance: MIDODRINE HYDROCHLORIDE
  6. ACETAMINOPHEN. [Concomitant]
     Active Substance: ACETAMINOPHEN
  7. COZAAR [Concomitant]
     Active Substance: LOSARTAN POTASSIUM
  8. MULTIVITAMINS [Concomitant]
     Active Substance: VITAMINS
  9. MARINOL                            /00003301/ [Concomitant]
  10. GLYCOLAX [Concomitant]
     Active Substance: POLYETHYLENE GLYCOL 3350
  11. CARVEDILOL. [Concomitant]
     Active Substance: CARVEDILOL
  12. SENNA PLUS                         /00142201/ [Concomitant]
  13. PERCOCET                           /00446701/ [Concomitant]
     Active Substance: ACETAMINOPHEN\OXYCODONE HYDROCHLORIDE\OXYCODONE TEREPHTHALATE
  14. LANTUS SOLOSTAR [Concomitant]
     Active Substance: INSULIN GLARGINE
  15. B COMPLEX WITH C [Concomitant]
  16. ASPIRIN                            /00002701/ [Concomitant]
     Active Substance: ASPIRIN
  17. ZOFRAN [Concomitant]
     Active Substance: ONDANSETRON HYDROCHLORIDE
  18. RESTORIL [Concomitant]
     Active Substance: TEMAZEPAM
  19. FOLIC ACID. [Concomitant]
     Active Substance: FOLIC ACID
  20. VITAMIN D3 [Concomitant]
     Active Substance: CHOLECALCIFEROL
  21. CALCIUM ACETATE. [Concomitant]
     Active Substance: CALCIUM ACETATE
  22. B6 [Concomitant]
     Active Substance: PYRIDOXINE HYDROCHLORIDE
  23. VELTASSA [Suspect]
     Active Substance: PATIROMER
     Indication: HYPERKALAEMIA
     Dosage: 8.4 G, QD
     Route: 048
  24. ZOCOR [Concomitant]
     Active Substance: SIMVASTATIN
  25. TRAMADOL HCL [Concomitant]
     Active Substance: TRAMADOL HYDROCHLORIDE
  26. SODIUM BICARBONATE. [Concomitant]
     Active Substance: SODIUM BICARBONATE
  27. PLAVIX [Concomitant]
     Active Substance: CLOPIDOGREL BISULFATE
  28. HUMALOG [Concomitant]
     Active Substance: INSULIN LISPRO

REACTIONS (1)
  - Diarrhoea [Unknown]

NARRATIVE: CASE EVENT DATE: 201603
